FAERS Safety Report 7240331-3 (Version None)
Quarter: 2011Q1

REPORT INFORMATION
  Report Type: 
  Country: None (occurrence: None)
  Receive Date: 20110124
  Receipt Date: 20110113
  Transmission Date: 20110831
  Serious: Yes (Life-Threatening, Hospitalization)
  Sender: FDA-Public Use
  Company Number: JP-CELGENEUS-087-21880-10113134

PATIENT
  Sex: Female
  Weight: 35.5 kg

DRUGS (7)
  1. LENADEX [Suspect]
     Route: 048
     Dates: start: 20101116, end: 20101119
  2. ZOMETA [Concomitant]
     Indication: MULTIPLE MYELOMA
     Route: 041
     Dates: start: 20101130, end: 20101130
  3. LENADEX [Suspect]
     Route: 048
     Dates: start: 20101221, end: 20101222
  4. REVLIMID [Suspect]
     Indication: MULTIPLE MYELOMA
     Route: 048
     Dates: start: 20100930, end: 20101020
  5. REVLIMID [Suspect]
     Route: 048
     Dates: start: 20101116, end: 20101130
  6. REVLIMID [Suspect]
     Route: 048
     Dates: start: 20101221, end: 20101222
  7. LENADEX [Suspect]
     Indication: MULTIPLE MYELOMA
     Route: 048
     Dates: start: 20100930, end: 20101003

REACTIONS (5)
  - THROMBOCYTOPENIA [None]
  - NEUTROPHIL COUNT DECREASED [None]
  - NEUTROPENIA [None]
  - INFECTION [None]
  - RASH [None]
